FAERS Safety Report 23691151 (Version 1)
Quarter: 2024Q2

REPORT INFORMATION
  Report Type: Spontaneous
  Country: US (occurrence: US)
  Receive Date: 20240401
  Receipt Date: 20240401
  Transmission Date: 20240716
  Serious: No
  Sender: FDA-Public Use
  Company Number: US-TEVA-VS-3148919

PATIENT
  Sex: Female

DRUGS (1)
  1. TRAMADOL HYDROCHLORIDE [Suspect]
     Active Substance: TRAMADOL HYDROCHLORIDE
     Indication: Product used for unknown indication
     Dosage: THE PATIENT TAKES TRAMADOL HYDROCHLORIDE 50MG DAILY AS NEEDED FOR AN UNKNOWN INDICATION.
     Route: 065

REACTIONS (2)
  - Feeling abnormal [Unknown]
  - Dizziness [Unknown]
